FAERS Safety Report 5300861-8 (Version None)
Quarter: 2007Q2

REPORT INFORMATION
  Report Type: 
  Country: None (occurrence: None)
  Receive Date: 20070412
  Receipt Date: 20070330
  Transmission Date: 20071010
  Serious: Yes (Hospitalization)
  Sender: FDA-Public Use
  Company Number: 2007S1000098

PATIENT
  Age: 15 Year
  Sex: Female
  Weight: 52.6173 kg

DRUGS (2)
  1. EVOCLIN [Suspect]
     Indication: ACNE
     Dosage: 1 PCT; BID; TOP
     Route: 061
     Dates: start: 20060101, end: 20070328
  2. SYNTHROID [Concomitant]

REACTIONS (2)
  - ENTERITIS [None]
  - GASTRITIS [None]
